FAERS Safety Report 25978850 (Version 2)
Quarter: 2025Q4

REPORT INFORMATION
  Report Type: Spontaneous
  Country: US (occurrence: US)
  Receive Date: 20251030
  Receipt Date: 20251125
  Transmission Date: 20260118
  Serious: No
  Sender: CIPLA
  Company Number: US-CIPLA LTD.-2025US13447

PATIENT

DRUGS (2)
  1. TESTOSTERONE [Suspect]
     Active Substance: TESTOSTERONE
     Indication: Blood testosterone decreased
     Dosage: UNK, (EVERY 21 DAYS) FROM YEARS (SINCE 2011) (REGUKAR USER)
     Route: 065
     Dates: start: 2011
  2. TESTOSTERONE [Suspect]
     Active Substance: TESTOSTERONE
     Dosage: UNK, (EVERY 21 DAYS) ( 2 VIALS)
     Route: 065

REACTIONS (5)
  - Incorrect dose administered [Unknown]
  - Product leakage [Unknown]
  - Product container seal issue [Unknown]
  - Product quality issue [Unknown]
  - Product dose omission issue [Unknown]
